FAERS Safety Report 4493325-5 (Version None)
Quarter: 2004Q4

REPORT INFORMATION
  Report Type: 
  Country: None (occurrence: None)
  Receive Date: 20041102
  Receipt Date: 20041021
  Transmission Date: 20050328
  Serious: Yes (Disabling, Other)
  Sender: FDA-Public Use
  Company Number: 2004-00681

PATIENT
  Age: 64 Year
  Sex: Male
  Weight: 89.8 kg

DRUGS (2)
  1. VELCADE [Suspect]
     Indication: MULTIPLE MYELOMA
     Dosage: 2.60 MG, IV BOLUS
     Route: 040
     Dates: start: 20040821
  2. ZOMETA [Concomitant]

REACTIONS (11)
  - ERYTHEMA OF EYELID [None]
  - EYE INFECTION VIRAL [None]
  - EYE IRRITATION [None]
  - EYE PRURITUS [None]
  - EYELID DISORDER [None]
  - EYELID OEDEMA [None]
  - HERPES ZOSTER OPHTHALMIC [None]
  - KERATOCONJUNCTIVITIS SICCA [None]
  - LACRIMATION INCREASED [None]
  - SCLERAL DISCOLOURATION [None]
  - VISION BLURRED [None]
